FAERS Safety Report 9245729 (Version 1)
Quarter: 2013Q2

REPORT INFORMATION
  Report Type: Spontaneous
  Country: JP (occurrence: JP)
  Receive Date: 20130422
  Receipt Date: 20130422
  Transmission Date: 20140414
  Serious: No
  Sender: FDA-Public Use
  Company Number: JP-ROCHE-1216545

PATIENT
  Age: 88 Year
  Sex: Female

DRUGS (2)
  1. TAMIFLU [Suspect]
     Indication: PRODUCT USED FOR UNKNOWN INDICATION
     Route: 048
     Dates: start: 20130415, end: 20130415
  2. TAMIFLU [Suspect]
     Route: 048
     Dates: start: 20130416

REACTIONS (3)
  - Somnolence [Unknown]
  - Decreased appetite [Unknown]
  - Overdose [Unknown]
